FAERS Safety Report 8233207-6 (Version None)
Quarter: 2012Q1

REPORT INFORMATION
  Report Type: 
  Country: None (occurrence: None)
  Receive Date: 20120326
  Receipt Date: 20120321
  Transmission Date: 20120608
  Serious: No
  Sender: FDA-Public Use
  Company Number: US-PFIZER INC-2012062991

PATIENT
  Sex: Female
  Weight: 113.4 kg

DRUGS (16)
  1. PROGRAF [Concomitant]
     Dosage: 5 MG, 2X/DAY
  2. VALIUM [Concomitant]
     Dosage: 5 MG, 1X/DAY
  3. ACIPHEX [Concomitant]
     Indication: GASTRITIS
  4. NORVASC [Suspect]
     Indication: HYPERTENSION
     Dosage: UNK
  5. BENICAR [Suspect]
     Indication: HYPERTENSION
     Dosage: UNK
  6. MICARDIS [Suspect]
     Indication: HYPERTENSION
     Dosage: UNK
  7. ACIPHEX [Concomitant]
     Indication: HYPERCHLORHYDRIA
     Dosage: 20 MG, 1X/DAY
  8. NOVOLOG [Concomitant]
     Indication: DIABETES MELLITUS
     Dosage: 10 MG, 2X/DAY
  9. IMURAN [Concomitant]
     Dosage: 100 MG, 1X/DAY
  10. CEFADROXIL [Suspect]
     Indication: BRONCHITIS
     Dosage: UNK
  11. HYOSCYAMINE [Concomitant]
     Dosage: 0.125 MG, AS NEEDED
  12. WELLBUTRIN [Concomitant]
     Dosage: 100 MG, 1X/DAY
  13. SINGULAIR [Concomitant]
     Indication: ASTHMA
     Dosage: 10 MG, 1X/DAY
  14. HUMULIN N [Concomitant]
     Indication: DIABETES MELLITUS
     Dosage: 30 MG + 10 MG
  15. PLAVIX [Concomitant]
     Dosage: 75 MG, UNK
  16. TAMIFLU [Concomitant]
     Dosage: 75 MG, UNK

REACTIONS (2)
  - SWELLING [None]
  - HYPERSENSITIVITY [None]
